FAERS Safety Report 15276657 (Version 1)
Quarter: 2018Q3

REPORT INFORMATION
  Report Type: Spontaneous
  Country: US (occurrence: US)
  Receive Date: 20180729
  Receipt Date: 20180729
  Transmission Date: 20181010
  Serious: Yes (Hospitalization, Disabling)
  Sender: FDA-Public Use
  Company Number: None

PATIENT
  Age: 69 Year
  Sex: Male
  Weight: 83.25 kg

DRUGS (26)
  1. AMLODIPINE [Concomitant]
     Active Substance: AMLODIPINE BESYLATE
  2. FISH OIL [Concomitant]
     Active Substance: FISH OIL
  3. TYLENOL ARTHRITIS(ER) [Concomitant]
  4. ZANTAC [Concomitant]
     Active Substance: RANITIDINE HYDROCHLORIDE
  5. COQ10 [Concomitant]
     Active Substance: UBIDECARENONE
  6. GLUCOSAMINE/ CHONDROITON [Concomitant]
  7. OMEPRAZOLE MAGNESIUM DELAYED RELEASE CAPSULES [Suspect]
     Active Substance: OMEPRAZOLE MAGNESIUM
     Indication: PROPHYLAXIS
     Dosage: ?          QUANTITY:1 CAPSULE(S);?
     Route: 048
     Dates: start: 20180401, end: 20180421
  8. CARVEDILOL. [Concomitant]
     Active Substance: CARVEDILOL
  9. GLIMEPERIDE [Concomitant]
     Active Substance: GLIMEPIRIDE
  10. CETIRIZINE [Concomitant]
     Active Substance: CETIRIZINE HYDROCHLORIDE
  11. PIOGLITAZONE. [Concomitant]
     Active Substance: PIOGLITAZONE
  12. TRIAMTERENE AND HYDROCHLOROTHIAZIDE [Concomitant]
     Active Substance: HYDROCHLOROTHIAZIDE\TRIAMTERENE
  13. ASPIRIN. [Concomitant]
     Active Substance: ASPIRIN
  14. IRON [Concomitant]
     Active Substance: IRON
  15. MULTI?VITAMIN?MINERAL [Concomitant]
  16. TAMSULOSIN [Concomitant]
     Active Substance: TAMSULOSIN
  17. COLACE [Concomitant]
     Active Substance: DOCUSATE SODIUM
  18. CLONIDINE. [Concomitant]
     Active Substance: CLONIDINE
  19. FENOFIBRATE. [Concomitant]
     Active Substance: FENOFIBRATE
  20. METAMUCIL POWDER [Concomitant]
  21. DOXYLAMINE [Concomitant]
     Active Substance: DOXYLAMINE
  22. VITAMIN B12 [Concomitant]
     Active Substance: CYANOCOBALAMIN
  23. VITAMIN D3 [Concomitant]
     Active Substance: CHOLECALCIFEROL
  24. OMEPRAZOLE MAGNESIUM DELAYED RELEASE CAPSULES [Suspect]
     Active Substance: OMEPRAZOLE MAGNESIUM
     Indication: GASTROOESOPHAGEAL REFLUX DISEASE
     Dosage: ?          QUANTITY:1 CAPSULE(S);?
     Route: 048
     Dates: start: 20180401, end: 20180421
  25. FLUTICASONE. [Concomitant]
     Active Substance: FLUTICASONE
  26. SIMVASTATIN. [Concomitant]
     Active Substance: SIMVASTATIN

REACTIONS (6)
  - Urinary tract infection [None]
  - Renal failure [None]
  - Pyelonephritis [None]
  - Dialysis [None]
  - Chronic kidney disease [None]
  - Clostridium difficile infection [None]

NARRATIVE: CASE EVENT DATE: 20180512
